FAERS Safety Report 6155094-2 (Version None)
Quarter: 2009Q2

REPORT INFORMATION
  Report Type: 
  Country: None (occurrence: None)
  Receive Date: 20090414
  Receipt Date: 20090408
  Transmission Date: 20091009
  Serious: Yes (Hospitalization, Other)
  Sender: FDA-Public Use
  Company Number: US-AMGEN-QUU342181

PATIENT
  Sex: Female

DRUGS (6)
  1. EPOGEN [Suspect]
     Indication: DIALYSIS
     Route: 065
     Dates: start: 20080904, end: 20090319
  2. PRILOSEC [Concomitant]
  3. PREDNISONE TAB [Concomitant]
  4. POTASSIUM CHLORIDE [Concomitant]
  5. CELLCEPT [Concomitant]
     Dates: end: 20090201
  6. MYFORTIC [Concomitant]
     Dates: start: 20090201

REACTIONS (4)
  - HAEMOGLOBIN DECREASED [None]
  - HOSPITALISATION [None]
  - RETICULOCYTE COUNT DECREASED [None]
  - VOMITING [None]
